FAERS Safety Report 15791730 (Version 2)
Quarter: 2019Q1

REPORT INFORMATION
  Report Type: Spontaneous
  Country: US (occurrence: US)
  Receive Date: 20190105
  Receipt Date: 20190111
  Transmission Date: 20190417
  Serious: Yes (Hospitalization)
  Sender: FDA-Public Use
  Company Number: US-AUROBINDO-AUR-APL-2018-063988

PATIENT
  Age: 63 Year
  Sex: Female

DRUGS (6)
  1. DIETHYLCARBAMAZINE [Suspect]
     Active Substance: DIETHYLCARBAMAZINE
     Dosage: 50 MILLIGRAM, 3 TIMES A DAY
     Route: 065
  2. PREDNISONE. [Suspect]
     Active Substance: PREDNISONE
     Indication: FILARIASIS
     Dosage: 40 MILLIGRAM, UNK
     Route: 065
  3. PREDNISONE. [Suspect]
     Active Substance: PREDNISONE
     Dosage: 20 MILLIGRAM, ONCE A DAY
     Route: 065
  4. DIETHYLCARBAMAZINE [Suspect]
     Active Substance: DIETHYLCARBAMAZINE
     Indication: FILARIASIS
     Dosage: 50 MILLIGRAM, UNK
     Route: 065
  5. DIETHYLCARBAMAZINE [Suspect]
     Active Substance: DIETHYLCARBAMAZINE
     Dosage: 100 MILLIGRAM, 3 TIMES A DAY
     Route: 065
  6. DIETHYLCARBAMAZINE [Suspect]
     Active Substance: DIETHYLCARBAMAZINE
     Dosage: 200 MILLIGRAM, 3 TIMES A DAY
     Route: 065

REACTIONS (2)
  - Leukocytosis [Unknown]
  - Chest pain [Recovered/Resolved]
